FAERS Safety Report 16786708 (Version 3)
Quarter: 2020Q1

REPORT INFORMATION
  Report Type: Spontaneous
  Country: US (occurrence: US)
  Receive Date: 20190909
  Receipt Date: 20200303
  Transmission Date: 20200409
  Serious: No
  Sender: FDA-Public Use
  Company Number: US-AKORN PHARMACEUTICALS-2019AKN01897

PATIENT
  Age: 46 Year
  Sex: Female
  Weight: 103.4 kg

DRUGS (6)
  1. METFORMIN [Concomitant]
     Active Substance: METFORMIN HYDROCHLORIDE
  2. BENICAR [Concomitant]
     Active Substance: OLMESARTAN MEDOXOMIL
  3. MYORISAN [Suspect]
     Active Substance: ISOTRETINOIN
     Indication: ACNE CYSTIC
     Dosage: 40 MG, 2X/DAY
     Route: 048
     Dates: start: 20190506, end: 2019
  4. HUMALOG [Concomitant]
     Active Substance: INSULIN LISPRO
  5. SYNTHROID [Concomitant]
     Active Substance: LEVOTHYROXINE SODIUM
  6. NOVOLIN NOS [Concomitant]
     Active Substance: INSULIN HUMAN

REACTIONS (1)
  - Wound infection [Unknown]

NARRATIVE: CASE EVENT DATE: 201907
